FAERS Safety Report 7743276-5 (Version None)
Quarter: 2011Q3

REPORT INFORMATION
  Report Type: 
  Country: None (occurrence: None)
  Receive Date: 20110909
  Receipt Date: 20110909
  Transmission Date: 20111222
  Serious: Yes (Other)
  Sender: FDA-Public Use
  Company Number: None

PATIENT
  Age: 11 Year
  Sex: Male

DRUGS (1)
  1. RISPERIDONE [Suspect]
     Dosage: 0.6ML BID
     Route: 048
     Dates: start: 20080101

REACTIONS (5)
  - DRUG INTOLERANCE [None]
  - AGGRESSION [None]
  - ANXIETY [None]
  - EDUCATIONAL PROBLEM [None]
  - IRRITABILITY [None]
